FAERS Safety Report 13715389 (Version 1)
Quarter: 2017Q3

REPORT INFORMATION
  Report Type: Report from Study
  Country: US (occurrence: US)
  Receive Date: 20170704
  Receipt Date: 20170704
  Transmission Date: 20171127
  Serious: Yes (Hospitalization)
  Sender: FDA-Public Use
  Company Number: PHEH2017US019675

PATIENT
  Sex: Male
  Weight: 98.5 kg

DRUGS (19)
  1. PRAVASTATIN. [Concomitant]
     Active Substance: PRAVASTATIN
     Indication: PRODUCT USED FOR UNKNOWN INDICATION
     Dosage: 1 DF, QD
     Route: 048
  2. ENTRESTO [Suspect]
     Active Substance: SACUBITRIL\VALSARTAN
     Indication: PRODUCT USED FOR UNKNOWN INDICATION
     Dosage: 1 DF, 26 MG SACUBITRIL, 24 MG VALSARTAN, BID
     Route: 048
  3. ACETAMINOPHEN. [Concomitant]
     Active Substance: ACETAMINOPHEN
     Indication: PAIN
     Dosage: 2 DF, Q4H
     Route: 048
     Dates: start: 20170602
  4. BENADRYL [Concomitant]
     Active Substance: DIPHENHYDRAMINE HYDROCHLORIDE
     Indication: SLEEP DISORDER
     Dosage: 1 DF, PRN, HS
     Route: 048
     Dates: start: 20170602
  5. POTASSIUM CHLORIDE. [Concomitant]
     Active Substance: POTASSIUM CHLORIDE
     Indication: PRODUCT USED FOR UNKNOWN INDICATION
     Dosage: 1 DF, QD
     Route: 048
     Dates: start: 20170603
  6. ZOFRAN [Concomitant]
     Active Substance: ONDANSETRON HYDROCHLORIDE
     Indication: VOMITING
  7. CARVEDILOL. [Concomitant]
     Active Substance: CARVEDILOL
     Indication: PRODUCT USED FOR UNKNOWN INDICATION
     Dosage: 1 DF, BID
     Route: 048
  8. DIGOXIN. [Concomitant]
     Active Substance: DIGOXIN
     Indication: PRODUCT USED FOR UNKNOWN INDICATION
     Dosage: 1 DF, QD, 1 REFILLS
     Route: 048
     Dates: start: 20170603
  9. ENTRESTO [Suspect]
     Active Substance: SACUBITRIL\VALSARTAN
     Dosage: 1 DF, 26 MG SACUBITRIL, 24 MG VALSARTAN, BID
     Route: 048
  10. COLACE [Concomitant]
     Active Substance: DOCUSATE SODIUM
     Indication: CONSTIPATION
     Dosage: 1 DF, Q12H, PRN
     Route: 048
     Dates: start: 20170602
  11. ZOFRAN [Concomitant]
     Active Substance: ONDANSETRON HYDROCHLORIDE
     Indication: NAUSEA
  12. ENTRESTO [Suspect]
     Active Substance: SACUBITRIL\VALSARTAN
     Dosage: 1 DF, 49 MG SACUBITRIL, 51 MG VALSARTAN, BID
     Route: 048
     Dates: start: 20170604
  13. COREG [Concomitant]
     Active Substance: CARVEDILOL
     Indication: PRODUCT USED FOR UNKNOWN INDICATION
     Dosage: 1 DF, BID, 6 REFILLS
     Route: 048
     Dates: start: 20170603
  14. ZOFRAN [Concomitant]
     Active Substance: ONDANSETRON HYDROCHLORIDE
     Indication: PRODUCT USED FOR UNKNOWN INDICATION
     Dosage: 2 ML, Q6H, PRN
     Route: 042
     Dates: start: 20170602
  15. DOCUSATE SODIUM. [Concomitant]
     Active Substance: DOCUSATE SODIUM
     Indication: PRODUCT USED FOR UNKNOWN INDICATION
     Dosage: 1 DF, Q12H
     Route: 048
  16. ALDACTONE [Suspect]
     Active Substance: SPIRONOLACTONE
     Indication: PRODUCT USED FOR UNKNOWN INDICATION
     Dosage: 0.5 DF (12.5 MG), QD
     Route: 048
     Dates: start: 20170603
  17. PANTOPRAZOLE [Concomitant]
     Active Substance: PANTOPRAZOLE
     Indication: PRODUCT USED FOR UNKNOWN INDICATION
     Dosage: 1 DF, QD
     Route: 048
  18. ONDANSETRON [Concomitant]
     Active Substance: ONDANSETRON
     Indication: PRODUCT USED FOR UNKNOWN INDICATION
     Dosage: 4 MG, 2 ML, Q6H
     Route: 042
  19. FUROSEMIDE. [Concomitant]
     Active Substance: FUROSEMIDE
     Indication: PRODUCT USED FOR UNKNOWN INDICATION
     Dosage: 4 ML, BID
     Route: 042

REACTIONS (21)
  - Pulmonary embolism [Unknown]
  - Cardiac output decreased [Unknown]
  - Hypotension [Unknown]
  - Polyuria [Not Recovered/Not Resolved]
  - Drug intolerance [Unknown]
  - Cough [Unknown]
  - Congestive cardiomyopathy [Unknown]
  - Dyspnoea exertional [Recovered/Resolved]
  - Brain natriuretic peptide increased [Unknown]
  - Oedema [Unknown]
  - Cardiac failure acute [Unknown]
  - Orthopnoea [Unknown]
  - Weight increased [Unknown]
  - Dyspnoea [Not Recovered/Not Resolved]
  - Dyspnoea paroxysmal nocturnal [Unknown]
  - Breast tenderness [Unknown]
  - Breast pain [Unknown]
  - Ejection fraction decreased [Unknown]
  - Pulmonary arterial pressure increased [Unknown]
  - Breast mass [Unknown]
  - Hyperlipidaemia [Not Recovered/Not Resolved]
